FAERS Safety Report 8621950-6 (Version None)
Quarter: 2012Q3

REPORT INFORMATION
  Report Type: 
  Country: None (occurrence: None)
  Receive Date: 20120823
  Receipt Date: 20120823
  Transmission Date: 20120928
  Serious: Yes (Other)
  Sender: FDA-Public Use
  Company Number: None

PATIENT

DRUGS (2)
  1. HYDROMORPHONE HCL [Suspect]
     Dosage: EPIDUAL
     Route: 008
  2. HYDROMORPHONE HCL [Suspect]
     Dosage: EPIDURAL
     Route: 008

REACTIONS (1)
  - DRUG LABEL CONFUSION [None]
